FAERS Safety Report 19215579 (Version 3)
Quarter: 2021Q2

REPORT INFORMATION
  Report Type: Spontaneous
  Country: JP (occurrence: JP)
  Receive Date: 20210504
  Receipt Date: 20210624
  Transmission Date: 20210717
  Serious: Yes (Hospitalization)
  Sender: FDA-Public Use
  Company Number: NVSJ2021JP006574

PATIENT
  Age: 82 Year
  Sex: Female

DRUGS (4)
  1. EQUA TAB [Suspect]
     Active Substance: VILDAGLIPTIN
     Indication: TYPE 2 DIABETES MELLITUS
     Dosage: 100 MG
     Route: 048
     Dates: end: 202010
  2. METGLUCO [Concomitant]
     Active Substance: METFORMIN HYDROCHLORIDE
     Indication: PRODUCT USED FOR UNKNOWN INDICATION
     Dosage: 1000 MG
     Route: 048
     Dates: start: 20210314
  3. EQUA TAB [Suspect]
     Active Substance: VILDAGLIPTIN
     Dosage: 100 MG (PULVERIZATION)
     Route: 048
     Dates: start: 20210314
  4. EQUMET [Suspect]
     Active Substance: METFORMIN HYDROCHLORIDE\VILDAGLIPTIN
     Indication: TYPE 2 DIABETES MELLITUS
     Dosage: 1DF: METFORMIN HYDROCHLORIDE UNK/ VILDAGLIPTIN 50MG,UNK
     Route: 048
     Dates: start: 202010, end: 20210313

REACTIONS (3)
  - Dysphagia [Recovering/Resolving]
  - Cerebral infarction [Recovering/Resolving]
  - Concomitant disease aggravated [Recovering/Resolving]

NARRATIVE: CASE EVENT DATE: 20210313
